FAERS Safety Report 9156428 (Version 2)
Quarter: 2013Q2

REPORT INFORMATION
  Report Type: Spontaneous
  Country: US (occurrence: US)
  Receive Date: 20130312
  Receipt Date: 20130529
  Transmission Date: 20140414
  Serious: No
  Sender: FDA-Public Use
  Company Number: US-BIOGENIDEC-2013BI023199

PATIENT
  Age: 49 Year
  Sex: Female

DRUGS (1)
  1. AVONEX [Suspect]
     Indication: MULTIPLE SCLEROSIS
     Route: 030
     Dates: start: 20121201

REACTIONS (16)
  - Somnambulism [Unknown]
  - Balance disorder [Unknown]
  - Hypoaesthesia [Unknown]
  - Dysphagia [Unknown]
  - Optic neuritis [Unknown]
  - Stress [Unknown]
  - Burning sensation [Unknown]
  - Vascular rupture [Unknown]
  - Skin discolouration [Unknown]
  - Drug dose omission [Unknown]
  - Anxiety [Not Recovered/Not Resolved]
  - Nausea [Recovered/Resolved with Sequelae]
  - Dizziness [Unknown]
  - Vomiting [Unknown]
  - Headache [Unknown]
  - Depressed mood [Unknown]
